FAERS Safety Report 8042252-5 (Version None)
Quarter: 2012Q1

REPORT INFORMATION
  Report Type: 
  Country: None (occurrence: None)
  Receive Date: 20120112
  Receipt Date: 20110520
  Transmission Date: 20120608
  Serious: Yes (Death, Other)
  Sender: FDA-Public Use
  Company Number: SE-ROCHE-1029078

PATIENT

DRUGS (2)
  1. TARCEVA [Suspect]
     Indication: COLORECTAL CANCER METASTATIC
  2. AVASTIN [Suspect]
     Indication: COLORECTAL CANCER METASTATIC

REACTIONS (4)
  - INTESTINAL PERFORATION [None]
  - HAEMORRHAGE [None]
  - HYPERTENSION [None]
  - RASH [None]
